FAERS Safety Report 4640127-2 (Version None)
Quarter: 2005Q2

REPORT INFORMATION
  Report Type: 
  Country: None (occurrence: None)
  Receive Date: 20050420
  Receipt Date: 20050411
  Transmission Date: 20051028
  Serious: Yes (Hospitalization)
  Sender: FDA-Public Use
  Company Number: JP-ROCHE-402071

PATIENT
  Age: 31 Year
  Sex: Female

DRUGS (2)
  1. TAMIFLU [Suspect]
     Indication: INFLUENZA
     Route: 048
     Dates: start: 20050307, end: 20050307
  2. ACETAMINOFEN [Concomitant]
     Dosage: TRADE NAME: COCARL
     Route: 048
     Dates: start: 20050307, end: 20050307

REACTIONS (4)
  - ARTHRALGIA [None]
  - DYSPHONIA [None]
  - DYSPNOEA [None]
  - MYALGIA [None]
